FAERS Safety Report 12598147 (Version 2)
Quarter: 2016Q3

REPORT INFORMATION
  Report Type: Spontaneous
  Country: US (occurrence: US)
  Receive Date: 20160727
  Receipt Date: 20160811
  Transmission Date: 20161109
  Serious: Yes (Other)
  Sender: FDA-Public Use
  Company Number: US-BEH-2016071389

PATIENT
  Sex: Female
  Weight: 69.39 kg

DRUGS (25)
  1. CALCIUM [Concomitant]
     Active Substance: CALCIUM
  2. NYSTATIN. [Concomitant]
     Active Substance: NYSTATIN
  3. AZELASTINE [Concomitant]
     Active Substance: AZELASTINE
  4. PREDNISONE. [Concomitant]
     Active Substance: PREDNISONE
  5. PULMICORT TURBUHALER [Concomitant]
     Active Substance: BUDESONIDE
  6. AVELOX [Concomitant]
     Active Substance: MOXIFLOXACIN HYDROCHLORIDE
  7. CIALIS [Concomitant]
     Active Substance: TADALAFIL
  8. SUCRALFATE. [Concomitant]
     Active Substance: SUCRALFATE
     Indication: HERPES ZOSTER
     Dosage: 3 TIMES DAILY
     Route: 065
  9. FLONASE [Concomitant]
     Active Substance: FLUTICASONE PROPIONATE
  10. DIPHENHYDRAMINE. [Concomitant]
     Active Substance: DIPHENHYDRAMINE
  11. OXYGEN. [Concomitant]
     Active Substance: OXYGEN
  12. BUDESONIDE. [Concomitant]
     Active Substance: BUDESONIDE
  13. ALPRAZOLAM. [Concomitant]
     Active Substance: ALPRAZOLAM
  14. SINGULAIR [Concomitant]
     Active Substance: MONTELUKAST SODIUM
  15. MUCINEX [Concomitant]
     Active Substance: GUAIFENESIN
  16. ZEMAIRA [Suspect]
     Active Substance: .ALPHA.1-PROTEINASE INHIBITOR HUMAN
     Indication: ALPHA-1 ANTI-TRYPSIN DEFICIENCY
     Dosage: 90 MG/KG, QW
     Route: 042
     Dates: start: 20090909
  17. ZEMAIRA [Suspect]
     Active Substance: .ALPHA.1-PROTEINASE INHIBITOR HUMAN
     Dosage: 90 MG/KG, QW
     Route: 042
     Dates: start: 20090528
  18. SODIUM CHLORIDE. [Concomitant]
     Active Substance: SODIUM CHLORIDE
  19. BACTRIM [Concomitant]
     Active Substance: SULFAMETHOXAZOLE\TRIMETHOPRIM
  20. PROTONIX [Concomitant]
     Active Substance: PANTOPRAZOLE SODIUM
  21. EPIPEN [Concomitant]
     Active Substance: EPINEPHRINE
  22. LMX                                /00033401/ [Concomitant]
  23. METFORMIN [Concomitant]
     Active Substance: METFORMIN HYDROCHLORIDE
  24. CEFTRIAXONE. [Concomitant]
     Active Substance: CEFTRIAXONE
  25. IPRATROPIUM [Concomitant]
     Active Substance: IPRATROPIUM

REACTIONS (1)
  - Herpes zoster [Not Recovered/Not Resolved]
